FAERS Safety Report 21755299 (Version 1)
Quarter: 2022Q4

REPORT INFORMATION
  Report Type: Spontaneous
  Country: US (occurrence: None)
  Receive Date: 20221220
  Receipt Date: 20221220
  Transmission Date: 20230112
  Serious: No
  Sender: FDA-Public Use
  Company Number: US-SUPERNUS Pharmaceuticals, Inc.-SUP202111-002347

PATIENT
  Age: 55 Year
  Sex: Female

DRUGS (2)
  1. TROKENDI XR [Suspect]
     Active Substance: TOPIRAMATE
     Indication: Migraine
  2. TROKENDI XR [Suspect]
     Active Substance: TOPIRAMATE
     Indication: Cerebrovascular accident

REACTIONS (1)
  - Amnesia [Unknown]
